FAERS Safety Report 8351019-X (Version None)
Quarter: 2012Q2

REPORT INFORMATION
  Report Type: 
  Country: None (occurrence: None)
  Receive Date: 20120510
  Receipt Date: 20120507
  Transmission Date: 20120825
  Serious: Yes (Hospitalization, Disabling)
  Sender: FDA-Public Use
  Company Number: JP-B.I. PHARMACEUTICALS,INC./RIDGEFIELD-2012-BP-03696NB

PATIENT
  Sex: Male
  Weight: 64 kg

DRUGS (8)
  1. TORSEMIDE [Concomitant]
     Dosage: 4 MG
     Route: 048
     Dates: start: 20100106, end: 20120224
  2. SIGMART [Concomitant]
     Dosage: 15 MG
     Route: 048
     Dates: start: 20100120, end: 20120224
  3. LANSOPRAZOLE [Concomitant]
     Dosage: 30 MG
     Route: 048
     Dates: start: 20060401, end: 20120224
  4. MAGNESIUM SULFATE [Concomitant]
     Dosage: 1320 MG
     Route: 048
     Dates: start: 20081001, end: 20120224
  5. EPHEDRA TEAS [Concomitant]
     Dosage: 9 G
     Route: 048
     Dates: start: 20110827, end: 20120224
  6. PRADAXA [Suspect]
     Dosage: 220 MG
     Route: 048
     Dates: start: 20111022, end: 20120224
  7. CARVEDILOL [Concomitant]
     Dosage: 2.5 MG
     Route: 048
     Dates: start: 20110813, end: 20120224
  8. ACARDI [Concomitant]
     Route: 048
     Dates: start: 20110319, end: 20120224

REACTIONS (3)
  - DRUG EFFECT DECREASED [None]
  - BRAIN STEM INFARCTION [None]
  - CEREBRAL INFARCTION [None]
